FAERS Safety Report 6369222-7 (Version None)
Quarter: 2009Q3

REPORT INFORMATION
  Report Type: 
  Country: None (occurrence: None)
  Receive Date: 20090916
  Receipt Date: 20090908
  Transmission Date: 20100115
  Serious: Yes (Death)
  Sender: FDA-Public Use
  Company Number: ADR19722009

PATIENT
  Age: 84 Year
  Sex: Male

DRUGS (1)
  1. SERTRALINE HCL [Suspect]

REACTIONS (6)
  - HYPOTENSION [None]
  - LIVER DISORDER [None]
  - MULTI-ORGAN FAILURE [None]
  - RENAL IMPAIRMENT [None]
  - RESPIRATORY FAILURE [None]
  - TOXIC EPIDERMAL NECROLYSIS [None]
